FAERS Safety Report 9743302 (Version 3)
Quarter: 2015Q3

REPORT INFORMATION
  Report Type: Spontaneous
  Country: US (occurrence: US)
  Receive Date: 20131210
  Receipt Date: 20150804
  Transmission Date: 20151125
  Serious: No
  Sender: FDA-Public Use
  Company Number: US-GILEAD-2009-0024952

PATIENT
  Age: 69 Year
  Sex: Female

DRUGS (15)
  1. LETAIRIS [Suspect]
     Active Substance: AMBRISENTAN
     Indication: PULMONARY ARTERIAL HYPERTENSION
     Route: 048
     Dates: start: 20090304
  2. OSCAL [Concomitant]
     Active Substance: CALCIUM CARBONATE
  3. METOPROLOL [Concomitant]
     Active Substance: METOPROLOL
  4. CRESTOR [Concomitant]
     Active Substance: ROSUVASTATIN CALCIUM
  5. BONIVA [Concomitant]
     Active Substance: IBANDRONATE SODIUM
  6. BYSTOLIC [Concomitant]
     Active Substance: NEBIVOLOL HYDROCHLORIDE
  7. NORVASC [Concomitant]
     Active Substance: AMLODIPINE BESYLATE
  8. LIPITOR [Concomitant]
     Active Substance: ATORVASTATIN CALCIUM
  9. ASPIRIN. [Concomitant]
     Active Substance: ASPIRIN
  10. LOVAZA [Concomitant]
     Active Substance: OMEGA-3-ACID ETHYL ESTERS
  11. PLAVIX [Concomitant]
     Active Substance: CLOPIDOGREL BISULFATE
  12. ZOLPIDEM [Concomitant]
     Active Substance: ZOLPIDEM\ZOLPIDEM TARTRATE
  13. ADCIRCA [Concomitant]
     Active Substance: TADALAFIL
  14. MELATONEX [Concomitant]
  15. DIOVAN [Concomitant]
     Active Substance: VALSARTAN

REACTIONS (2)
  - Decreased appetite [Recovering/Resolving]
  - Weight decreased [Recovering/Resolving]

NARRATIVE: CASE EVENT DATE: 20090304
